FAERS Safety Report 14337859 (Version 1)
Quarter: 2017Q4

REPORT INFORMATION
  Report Type: Report from Study
  Country: JP (occurrence: JP)
  Receive Date: 20171229
  Receipt Date: 20171229
  Transmission Date: 20180321
  Serious: Yes (Other)
  Sender: FDA-Public Use
  Company Number: JP-TEVA-2017-JP-839124

PATIENT

DRUGS (2)
  1. CARBOPLATIN. [Suspect]
     Active Substance: CARBOPLATIN
     Indication: NEOPLASM MALIGNANT
     Dosage: AUC 6.0 MG/ML X MIN ON DAY 1, REPEATED EVERY 3 WEEKS.
     Route: 041
  2. PACLITAXEL. [Suspect]
     Active Substance: PACLITAXEL
     Indication: NEOPLASM MALIGNANT
     Dosage: ON DAYS 1, 8 AND 15, REPEATED EVERY 3 WEEKS.
     Route: 041

REACTIONS (1)
  - Hypokalaemia [Unknown]
